FAERS Safety Report 25529917 (Version 1)
Quarter: 2025Q3

REPORT INFORMATION
  Report Type: Spontaneous
  Country: BR (occurrence: BR)
  Receive Date: 20250708
  Receipt Date: 20250708
  Transmission Date: 20251021
  Serious: Yes (Other)
  Sender: SANDOZ
  Company Number: BR-002147023-PHHY2019BR043251

PATIENT
  Age: 41 Year
  Sex: Female
  Weight: 69.9 kg

DRUGS (6)
  1. FLUOXETINE [Suspect]
     Active Substance: FLUOXETINE HYDROCHLORIDE
     Indication: Affective disorder
     Dosage: UNK UNK, QD
     Route: 048
     Dates: start: 2017
  2. GILENYA [Suspect]
     Active Substance: FINGOLIMOD HYDROCHLORIDE
     Indication: Multiple sclerosis
     Dosage: 0.5 MG, QD
     Route: 048
     Dates: start: 20180810
  3. GILENYA [Suspect]
     Active Substance: FINGOLIMOD HYDROCHLORIDE
     Dosage: 0.5 MG, QD
     Route: 048
  4. GILENYA [Suspect]
     Active Substance: FINGOLIMOD HYDROCHLORIDE
     Route: 065
  5. VITAMIN B12 [Concomitant]
     Active Substance: CYANOCOBALAMIN
     Indication: Vitamin B12 deficiency
     Dosage: 1 DF, QMO (1 VIAL PER MONTH)
     Route: 030
     Dates: start: 2019
  6. Vitamina d2 [Concomitant]
     Indication: Vitamin D deficiency
     Dosage: UNK UNK, QD
     Route: 048

REACTIONS (22)
  - Multiple sclerosis relapse [Recovered/Resolved with Sequelae]
  - Arthralgia [Recovered/Resolved with Sequelae]
  - Arthralgia [Recovered/Resolved with Sequelae]
  - Movement disorder [Recovered/Resolved with Sequelae]
  - Lymphocyte count decreased [Recovering/Resolving]
  - Decreased immune responsiveness [Unknown]
  - Multiple sclerosis relapse [Recovering/Resolving]
  - Hemiparesis [Recovered/Resolved with Sequelae]
  - Urinary retention [Recovered/Resolved with Sequelae]
  - Zika virus infection [Recovered/Resolved with Sequelae]
  - Peripheral swelling [Unknown]
  - Diarrhoea [Recovered/Resolved with Sequelae]
  - Arthralgia [Recovering/Resolving]
  - Limb discomfort [Recovering/Resolving]
  - Eosinophil count decreased [Unknown]
  - Bacterial infection [Unknown]
  - Urine sodium decreased [Unknown]
  - Hypoaesthesia [Recovered/Resolved with Sequelae]
  - Gait disturbance [Recovered/Resolved with Sequelae]
  - Haemoglobin urine present [Unknown]
  - Red blood cell sedimentation rate increased [Unknown]
  - Urinary sediment abnormal [Unknown]

NARRATIVE: CASE EVENT DATE: 20180812
